FAERS Safety Report 4523049-7 (Version None)
Quarter: 2004Q4

REPORT INFORMATION
  Report Type: 
  Country: None (occurrence: None)
  Receive Date: 20041207
  Receipt Date: 20041207
  Transmission Date: 20050328
  Serious: Yes (Other)
  Sender: FDA-Public Use
  Company Number: None

PATIENT
  Age: 38 Year
  Sex: Male
  Weight: 78.9259 kg

DRUGS (1)
  1. SERTRALINE   50MG   VA [Suspect]
     Indication: ANXIETY
     Dosage: 1 TABLET   ONCE A DAY   ORAL
     Route: 048
     Dates: start: 20030906, end: 20040115

REACTIONS (2)
  - DISTURBANCE IN ATTENTION [None]
  - MEMORY IMPAIRMENT [None]
